FAERS Safety Report 7220116-4 (Version None)
Quarter: 2011Q1

REPORT INFORMATION
  Report Type: 
  Country: None (occurrence: None)
  Receive Date: 20110111
  Receipt Date: 20110104
  Transmission Date: 20110831
  Serious: Yes (Hospitalization)
  Sender: FDA-Public Use
  Company Number: Z0007249A

PATIENT
  Age: 60 Year
  Sex: Male
  Weight: 74.5 kg

DRUGS (6)
  1. LORTAB [Concomitant]
     Indication: OSTEOARTHRITIS
     Dosage: 2.5MG AS REQUIRED
     Route: 048
     Dates: start: 20070101
  2. LOTREL [Concomitant]
     Indication: HYPERTENSION
     Dosage: 2.5MG PER DAY
     Route: 048
     Dates: start: 20070101
  3. SALMETEROL [Suspect]
     Indication: CHRONIC OBSTRUCTIVE PULMONARY DISEASE
     Route: 055
     Dates: start: 20101007
  4. SPIRIVA [Concomitant]
     Indication: CHRONIC OBSTRUCTIVE PULMONARY DISEASE
     Dosage: 18MCG TWICE PER DAY
     Route: 048
     Dates: start: 20070101
  5. AMBIEN [Concomitant]
     Indication: INSOMNIA
     Dosage: 5MG AS REQUIRED
     Route: 048
     Dates: start: 20070101
  6. VENTOLIN [Concomitant]
     Indication: CHRONIC OBSTRUCTIVE PULMONARY DISEASE
     Dosage: 90MCG AS REQUIRED
     Route: 055
     Dates: start: 20070101

REACTIONS (1)
  - CHRONIC OBSTRUCTIVE PULMONARY DISEASE [None]
